FAERS Safety Report 7392008-1 (Version None)
Quarter: 2011Q2

REPORT INFORMATION
  Report Type: 
  Country: None (occurrence: None)
  Receive Date: 20110404
  Receipt Date: 20110324
  Transmission Date: 20111010
  Serious: Yes (Death, Hospitalization)
  Sender: FDA-Public Use
  Company Number: HU-PFIZER INC-HU-WYE-H14153010

PATIENT
  Age: 56 Year
  Sex: Male
  Weight: 78 kg

DRUGS (6)
  1. ONDANSETRON [Concomitant]
     Dosage: UNK
     Route: 065
     Dates: start: 20100120
  2. TRAMADOL [Concomitant]
     Dosage: UNK
     Route: 065
     Dates: start: 20091015
  3. TEMSIROLIMUS [Suspect]
     Indication: RENAL CELL CARCINOMA
     Dosage: 25 MG, 1X/WK
     Route: 042
     Dates: start: 20091203, end: 20100310
  4. HEPARIN-FRACTION, SODIUM SALT [Concomitant]
     Dosage: UNK
     Route: 065
     Dates: start: 20091029
  5. BEVACIZUMAB [Suspect]
     Indication: RENAL CELL CARCINOMA
     Dosage: 10 MG/KG, 1X/2 WK
     Route: 042
     Dates: start: 20091203, end: 20100310
  6. ALPRAZOLAM [Concomitant]
     Indication: ANXIETY
     Dosage: UNK
     Route: 065

REACTIONS (4)
  - CIRCULATORY COLLAPSE [None]
  - DEHYDRATION [None]
  - PULMONARY EMBOLISM [None]
  - PERITONITIS [None]
